FAERS Safety Report 8388757-9 (Version None)
Quarter: 2012Q2

REPORT INFORMATION
  Report Type: 
  Country: None (occurrence: None)
  Receive Date: 20120528
  Receipt Date: 20120514
  Transmission Date: 20120825
  Serious: Yes (Other)
  Sender: FDA-Public Use
  Company Number: TR-BRISTOL-MYERS SQUIBB COMPANY-16589194

PATIENT
  Age: 33 Year
  Sex: Male

DRUGS (5)
  1. PRAVASTATIN SODIUM [Suspect]
     Indication: HYPERLIPIDAEMIA
  2. EZETIMIBE [Suspect]
     Indication: HYPERLIPIDAEMIA
  3. ROSUVASTATIN [Concomitant]
     Indication: HYPERLIPIDAEMIA
  4. FENOFIBRATE [Suspect]
     Indication: HYPERLIPIDAEMIA
  5. ATORVASTATIN CALCIUM [Concomitant]
     Indication: HYPERLIPIDAEMIA

REACTIONS (3)
  - NIGHTMARE [None]
  - AMNESIA [None]
  - IMPULSE-CONTROL DISORDER [None]
